FAERS Safety Report 20313353 (Version 1)
Quarter: 2022Q1

REPORT INFORMATION
  Report Type: Spontaneous
  Country: US (occurrence: US)
  Receive Date: 20220110
  Receipt Date: 20220110
  Transmission Date: 20220424
  Serious: No
  Sender: FDA-Public Use
  Company Number: US-TEVA-2021-US-1992310

PATIENT
  Age: 74 Year
  Sex: Female

DRUGS (2)
  1. MUPIROCIN [Suspect]
     Active Substance: MUPIROCIN
     Indication: Skin ulcer
     Route: 061
     Dates: start: 2021
  2. MUPIROCIN [Suspect]
     Active Substance: MUPIROCIN
     Indication: Skin infection

REACTIONS (7)
  - Application site pain [Unknown]
  - Application site pruritus [Unknown]
  - Sensory disturbance [Unknown]
  - Pain in extremity [Unknown]
  - Joint swelling [Unknown]
  - Skin lesion [Unknown]
  - Peripheral swelling [Unknown]

NARRATIVE: CASE EVENT DATE: 20210101
